FAERS Safety Report 8267570-7 (Version None)
Quarter: 2012Q2

REPORT INFORMATION
  Report Type: 
  Country: None (occurrence: None)
  Receive Date: 20120409
  Receipt Date: 20120403
  Transmission Date: 20120825
  Serious: Yes (Other)
  Sender: FDA-Public Use
  Company Number: CHPA2012US006169

PATIENT
  Age: 67 Year
  Sex: Female

DRUGS (2)
  1. VOLTAREN [Suspect]
     Indication: OSTEOARTHRITIS
     Dosage: UNK, PRN
     Route: 061
     Dates: start: 20110401
  2. VOLTAREN [Suspect]
     Indication: OSTEOARTHRITIS
     Dosage: 75 MG, BID
     Route: 048

REACTIONS (3)
  - DRUG DEPENDENCE [None]
  - OFF LABEL USE [None]
  - DRUG ADMINISTRATION ERROR [None]
